FAERS Safety Report 19192394 (Version 1)
Quarter: 2021Q2

REPORT INFORMATION
  Report Type: Report from Study
  Country: CA (occurrence: CA)
  Receive Date: 20210429
  Receipt Date: 20210429
  Transmission Date: 20210717
  Serious: Yes (Death, Hospitalization, Other)
  Sender: FDA-Public Use
  Company Number: CA-GILEAD-2021-0526187

PATIENT
  Age: 38 Year
  Sex: Female

DRUGS (1)
  1. AZTREONAM LYSINE [Suspect]
     Active Substance: AZTREONAM LYSINE
     Indication: CARTILAGE-HAIR HYPOPLASIA
     Dosage: UNK
     Route: 055
     Dates: start: 20210305, end: 202104

REACTIONS (3)
  - Off label use [Recovered/Resolved]
  - Death [Fatal]
  - Lung disorder [Fatal]

NARRATIVE: CASE EVENT DATE: 20210414
